FAERS Safety Report 6200627-0 (Version None)
Quarter: 2009Q2

REPORT INFORMATION
  Report Type: 
  Country: None (occurrence: None)
  Receive Date: 20090522
  Receipt Date: 20090427
  Transmission Date: 20091009
  Serious: Yes (Other)
  Sender: FDA-Public Use
  Company Number: NL-GENENTECH-282619

PATIENT
  Age: 57 Year
  Sex: Female

DRUGS (1)
  1. MABTHERA [Suspect]
     Indication: RHEUMATOID ARTHRITIS
     Route: 065

REACTIONS (4)
  - DEPRESSION [None]
  - DISEASE RECURRENCE [None]
  - NAUSEA [None]
  - RHEUMATOID ARTHRITIS [None]
